FAERS Safety Report 5980638-0 (Version None)
Quarter: 2008Q4

REPORT INFORMATION
  Report Type: 
  Country: None (occurrence: None)
  Receive Date: 20081205
  Receipt Date: 20080225
  Transmission Date: 20090506
  Serious: No
  Sender: FDA-Public Use
  Company Number: A0711544A

PATIENT
  Age: 53 Year
  Sex: Female

DRUGS (3)
  1. COMMIT [Suspect]
  2. COMMIT [Suspect]
  3. PAXIL [Concomitant]

REACTIONS (4)
  - DIZZINESS [None]
  - DYSPNOEA [None]
  - NICOTINE DEPENDENCE [None]
  - PALPITATIONS [None]
